FAERS Safety Report 15656544 (Version 1)
Quarter: 2018Q4

REPORT INFORMATION
  Report Type: Spontaneous
  Country: US (occurrence: US)
  Receive Date: 20181126
  Receipt Date: 20181126
  Transmission Date: 20190205
  Serious: Yes (Hospitalization)
  Sender: FDA-Public Use
  Company Number: US-B.I. PHARMACEUTICALS,INC./RIDGEFIELD-2018-BI-056419

PATIENT
  Age: 51 Year
  Sex: Male

DRUGS (4)
  1. TRESIBA [Concomitant]
     Active Substance: INSULIN DEGLUDEC
     Indication: TYPE 2 DIABETES MELLITUS
     Dosage: FORM STRENGTH: 35 UNITS
     Route: 065
  2. GLYXAMBI [Suspect]
     Active Substance: EMPAGLIFLOZIN\LINAGLIPTIN
     Dosage: FORM STRENGTH: 25MG/ 5MG  ACTION(S) TAKEN WITH PRODUCT: DRUG WITHDRAWN
     Route: 048
     Dates: start: 201806, end: 20181116
  3. HUMALOG [Concomitant]
     Active Substance: INSULIN LISPRO
     Indication: TYPE 2 DIABETES MELLITUS
     Dosage: DOSE DEPENDENT ON SLIDING SCALE MEASUREMENT; FORM STRENGTH: 5-10 UNITS; FORMULATION: SUBCUTANEOUS
     Route: 058
  4. GLYXAMBI [Suspect]
     Active Substance: EMPAGLIFLOZIN\LINAGLIPTIN
     Indication: TYPE 2 DIABETES MELLITUS
     Dosage: FORM STRENGTH: 10MG/ 5MG; ACTION(S) TAKEN WITH PRODUCT: DOSE INCREASED
     Route: 048
     Dates: start: 201805, end: 201806

REACTIONS (11)
  - Penile erythema [Unknown]
  - Pruritus genital [Unknown]
  - Dehydration [Recovered/Resolved]
  - Penile blister [Unknown]
  - Oral candidiasis [Unknown]
  - Paranasal sinus hypersecretion [Unknown]
  - Penile pain [Unknown]
  - Penile odour [Unknown]
  - Dyspnoea [Recovered/Resolved]
  - Urine odour abnormal [Unknown]
  - Sinusitis [Unknown]

NARRATIVE: CASE EVENT DATE: 201809
